FAERS Safety Report 8572234-6 (Version None)
Quarter: 2012Q3

REPORT INFORMATION
  Report Type: 
  Country: None (occurrence: None)
  Receive Date: 20120806
  Receipt Date: 20120801
  Transmission Date: 20120928
  Serious: Yes (Death, Other)
  Sender: FDA-Public Use
  Company Number: US-ASTELLAS-2012US005755

PATIENT
  Sex: Male

DRUGS (2)
  1. PROGRAF [Suspect]
     Indication: RENAL TRANSPLANT
     Dosage: 2 MG IN AM, 1 MG IN PM
     Route: 048
     Dates: start: 20040511
  2. PROGRAF [Suspect]
     Indication: PANCREAS TRANSPLANT

REACTIONS (3)
  - DEATH [None]
  - RENAL TRANSPLANT [None]
  - OFF LABEL USE [None]
